FAERS Safety Report 25749833 (Version 1)
Quarter: 2025Q3

REPORT INFORMATION
  Report Type: Report from Study
  Country: US (occurrence: US)
  Receive Date: 20250902
  Receipt Date: 20250902
  Transmission Date: 20251020
  Serious: Yes (Other)
  Sender: ACADIA PHARMACEUTICALS
  Company Number: US-ACADIA PHARMACEUTICALS INC.-ACA-2025-PIM-009659

PATIENT
  Sex: Female

DRUGS (5)
  1. NUPLAZID [Suspect]
     Active Substance: PIMAVANSERIN TARTRATE
     Indication: Product used for unknown indication
     Dosage: 34 MILLIGRAM, QD
     Route: 048
     Dates: start: 20240813
  2. ARICEPT [Concomitant]
     Active Substance: DONEPEZIL HYDROCHLORIDE
  3. MEMANTINE [Concomitant]
     Active Substance: MEMANTINE
  4. RIVASTIGMINE [Concomitant]
     Active Substance: RIVASTIGMINE
  5. FAMOTIDINE [Concomitant]
     Active Substance: FAMOTIDINE

REACTIONS (3)
  - Hallucination [Not Recovered/Not Resolved]
  - Inflammation [Not Recovered/Not Resolved]
  - Drug ineffective [Not Recovered/Not Resolved]
